FAERS Safety Report 23848076 (Version 1)
Quarter: 2024Q2

REPORT INFORMATION
  Report Type: Spontaneous
  Country: AT (occurrence: AT)
  Receive Date: 20240513
  Receipt Date: 20240513
  Transmission Date: 20240717
  Serious: Yes (Hospitalization, Other)
  Sender: FDA-Public Use
  Company Number: AT-ROCHE-2300190

PATIENT
  Age: 43 Year
  Sex: Male
  Weight: 78 kg

DRUGS (12)
  1. RITUXIMAB [Suspect]
     Active Substance: RITUXIMAB
     Indication: Diffuse large B-cell lymphoma refractory
     Dosage: UNK
     Route: 042
     Dates: end: 201411
  2. RITUXIMAB [Suspect]
     Active Substance: RITUXIMAB
     Dosage: MONOTHERAPY 2 CYCLES
     Route: 042
     Dates: end: 201808
  3. RITUXIMAB [Suspect]
     Active Substance: RITUXIMAB
     Dosage: UNK
     Route: 042
     Dates: start: 20190329
  4. CORTISONE ACETATE [Suspect]
     Active Substance: CORTISONE ACETATE
     Indication: Diffuse large B-cell lymphoma refractory
     Dosage: UNK
     Route: 065
     Dates: start: 20190329
  5. IFOSFAMIDE [Concomitant]
     Active Substance: IFOSFAMIDE
     Dosage: UNK
  6. PREDNISONE [Concomitant]
     Active Substance: PREDNISONE
     Dosage: 6 CYCLES
     Dates: end: 201808
  7. DOXORUBICIN [Concomitant]
     Active Substance: DOXORUBICIN
     Dosage: 6 CYCLES
     Dates: end: 201808
  8. SELINEXOR [Concomitant]
     Active Substance: SELINEXOR
     Dosage: UNK
     Dates: start: 201802
  9. VINCRISTINE [Concomitant]
     Active Substance: VINCRISTINE
     Dosage: 6 CYCLES
     Dates: end: 201808
  10. CYCLOPHOSPHAMIDE [Concomitant]
     Active Substance: CYCLOPHOSPHAMIDE
     Dosage: 6 CYCLES
     Dates: end: 201808
  11. CARBOPLATIN [Concomitant]
     Active Substance: CARBOPLATIN
     Dosage: UNK
  12. ETOPOSIDE [Concomitant]
     Active Substance: ETOPOSIDE
     Dosage: UNK

REACTIONS (5)
  - Hydronephrosis [Unknown]
  - Disease progression [Unknown]
  - Urinary retention [Unknown]
  - Pancytopenia [Unknown]
  - Therapy non-responder [Unknown]

NARRATIVE: CASE EVENT DATE: 20190403
